FAERS Safety Report 9103860 (Version 1)
Quarter: 2013Q1

REPORT INFORMATION
  Report Type: Spontaneous
  Country: IL (occurrence: IL)
  Receive Date: 20130219
  Receipt Date: 20130219
  Transmission Date: 20140127
  Serious: Yes (Hospitalization, Other)
  Sender: FDA-Public Use
  Company Number: IL-PFIZER INC-2013056682

PATIENT
  Age: 71 Year
  Sex: Female

DRUGS (4)
  1. ALPRAZOLAM [Suspect]
     Dosage: 1 MG, 1X/DAY
  2. FLUVOXAMINE [Suspect]
     Dosage: 100 MG, 1X/DAY
  3. BROTIZOLAM [Suspect]
     Dosage: 0.25 MG, 1X/DAY
  4. PROPRANOLOL [Concomitant]
     Indication: ATRIAL TACHYCARDIA
     Dosage: 30 MG, 1X/DAY

REACTIONS (4)
  - Delirium [Recovering/Resolving]
  - Blood creatine phosphokinase increased [Unknown]
  - Blood bilirubin increased [Unknown]
  - Hepatic enzyme increased [Unknown]
